FAERS Safety Report 23969486 (Version 1)
Quarter: 2024Q2

REPORT INFORMATION
  Report Type: Report from Study
  Country: DE (occurrence: DE)
  Receive Date: 20240612
  Receipt Date: 20240612
  Transmission Date: 20240715
  Serious: Yes (Hospitalization)
  Sender: FDA-Public Use
  Company Number: DE-ABBVIE-5797843

PATIENT
  Sex: Female

DRUGS (4)
  1. CARBIDOPA\LEVODOPA [Suspect]
     Active Substance: CARBIDOPA\LEVODOPA
     Indication: Parkinson^s disease
     Dosage: MD: 5.5ML; CRD: 3.1ML/H; CRN: 2.9ML/H; ED: 1.5ML
     Route: 050
     Dates: start: 20190205
  2. CARBIDOPA\LEVODOPA [Suspect]
     Active Substance: CARBIDOPA\LEVODOPA
  3. METAMIZOLE [Concomitant]
     Active Substance: METAMIZOLE
     Indication: Back pain
  4. PANTOPRAZOLE SODIUM [Concomitant]
     Active Substance: PANTOPRAZOLE SODIUM
     Indication: Abdominal pain upper

REACTIONS (16)
  - Back pain [Recovering/Resolving]
  - Therapeutic product effect decreased [Unknown]
  - Somnolence [Unknown]
  - Mobility decreased [Recovering/Resolving]
  - Therapeutic product effect variable [Unknown]
  - Glomerular filtration rate decreased [Unknown]
  - Blood creatinine increased [Unknown]
  - Stoma site pain [Unknown]
  - Cough [Recovered/Resolved]
  - Abnormal dreams [Recovering/Resolving]
  - Abdominal pain upper [Recovering/Resolving]
  - Hypochromic anaemia [Unknown]
  - Fatigue [Recovering/Resolving]
  - Parkinson^s disease [Recovering/Resolving]
  - Peripheral sensorimotor neuropathy [Unknown]
  - Stoma site discharge [Unknown]

NARRATIVE: CASE EVENT DATE: 20240101
